FAERS Safety Report 25217348 (Version 1)
Quarter: 2025Q2

REPORT INFORMATION
  Report Type: Spontaneous
  Country: FR (occurrence: FR)
  Receive Date: 20250420
  Receipt Date: 20250420
  Transmission Date: 20250717
  Serious: Yes (Hospitalization)
  Sender: AUROBINDO
  Company Number: FR-AFSSAPS-GR2025000504

PATIENT
  Age: 92 Year
  Sex: Male
  Weight: 62 kg

DRUGS (1)
  1. FLUOXETINE [Suspect]
     Active Substance: FLUOXETINE HYDROCHLORIDE
     Indication: Depression
     Dosage: 20 MILLIGRAM, ONCE A DAY
     Route: 048
     Dates: start: 202410, end: 20250207

REACTIONS (2)
  - Confusional state [Recovered/Resolved with Sequelae]
  - Agitation [Recovered/Resolved]

NARRATIVE: CASE EVENT DATE: 20241201
